FAERS Safety Report 18349883 (Version 2)
Quarter: 2020Q4

REPORT INFORMATION
  Report Type: Spontaneous
  Country: US (occurrence: US)
  Receive Date: 20201006
  Receipt Date: 20201109
  Transmission Date: 20210114
  Serious: No
  Sender: FDA-Public Use
  Company Number: US-PFIZER INC-2020383049

PATIENT
  Age: 74 Year
  Sex: Male

DRUGS (1)
  1. EUCRISA [Suspect]
     Active Substance: CRISABOROLE
     Indication: ECZEMA NUMMULAR
     Dosage: UNK

REACTIONS (4)
  - Product used for unknown indication [Unknown]
  - Skin atrophy [Unknown]
  - Skin lesion [Unknown]
  - Off label use [Unknown]
